FAERS Safety Report 22172579 (Version 2)
Quarter: 2023Q2

REPORT INFORMATION
  Report Type: Spontaneous
  Country: BE (occurrence: BE)
  Receive Date: 20230404
  Receipt Date: 20230412
  Transmission Date: 20230722
  Serious: Yes (Hospitalization, Other)
  Sender: FDA-Public Use
  Company Number: BE-PFIZER INC-PV202300061421

PATIENT
  Age: 85 Year
  Sex: Male
  Weight: 70 kg

DRUGS (4)
  1. VYNDAQEL [Suspect]
     Active Substance: TAFAMIDIS MEGLUMINE
     Indication: Familial amyloidosis
     Dosage: 1 DF, 1X/DAY
     Dates: start: 20220921, end: 20221231
  2. ELIQUIS [Concomitant]
     Active Substance: APIXABAN
     Indication: Atrial fibrillation
     Dosage: UNK
  3. VALSARTAN [Concomitant]
     Active Substance: VALSARTAN
     Indication: Hypertension
     Dosage: UNK
  4. CORDARONE [Concomitant]
     Active Substance: AMIODARONE HYDROCHLORIDE
     Indication: Atrial fibrillation
     Dosage: UNK

REACTIONS (8)
  - Cardiac failure [Recovered/Resolved]
  - Weight decreased [Recovered/Resolved]
  - Renal impairment [Recovered/Resolved]
  - Dehydration [Recovered/Resolved]
  - Decreased appetite [Recovered/Resolved]
  - Nausea [Recovered/Resolved]
  - General physical health deterioration [Recovered/Resolved]
  - Off label use [Unknown]
